FAERS Safety Report 5863312-0 (Version None)
Quarter: 2008Q3

REPORT INFORMATION
  Report Type: 
  Country: None (occurrence: None)
  Receive Date: 20080828
  Receipt Date: 20080818
  Transmission Date: 20090109
  Serious: Yes (Other)
  Sender: FDA-Public Use
  Company Number: PHHY2008AU07646

PATIENT
  Sex: Female

DRUGS (1)
  1. ZOMETA [Suspect]
     Indication: OSTEOPOROSIS
     Dosage: UNK
     Dates: end: 20071220

REACTIONS (6)
  - AUTOIMMUNE DISORDER [None]
  - EYE PAIN [None]
  - HEADACHE [None]
  - PAIN [None]
  - SCLERITIS [None]
  - UVEITIS [None]
